FAERS Safety Report 5791999-X (Version None)
Quarter: 2008Q2

REPORT INFORMATION
  Report Type: 
  Country: None (occurrence: None)
  Receive Date: 20080626
  Receipt Date: 20080620
  Transmission Date: 20081010
  Serious: Yes (Hospitalization)
  Sender: FDA-Public Use
  Company Number: IL-SANOFI-SYNTHELABO-A01200805992

PATIENT
  Age: 61 Year
  Sex: Male

DRUGS (5)
  1. DEXAMETHASONE [Concomitant]
     Dosage: UNK
     Route: 065
     Dates: start: 20080101, end: 20080427
  2. AVASTIN [Suspect]
     Route: 065
     Dates: start: 20080427, end: 20080427
  3. FLUOROURACIL [Concomitant]
     Route: 065
     Dates: start: 20080101, end: 20080427
  4. OXALIPLATIN [Suspect]
     Indication: COLON CANCER METASTATIC
     Route: 065
     Dates: start: 20080427, end: 20080427
  5. LEUCOVORIN CALCIUM [Concomitant]
     Route: 065
     Dates: start: 20080101, end: 20080427

REACTIONS (10)
  - ABDOMINAL PAIN [None]
  - ANAEMIA [None]
  - ARTHRALGIA [None]
  - C-REACTIVE PROTEIN INCREASED [None]
  - DERMATITIS EXFOLIATIVE [None]
  - DYSPNOEA [None]
  - PSORIASIS [None]
  - RED BLOOD CELL SEDIMENTATION RATE INCREASED [None]
  - SKIN HAEMORRHAGE [None]
  - SKIN INFECTION [None]
